FAERS Safety Report 17421160 (Version 1)
Quarter: 2020Q1

REPORT INFORMATION
  Report Type: Spontaneous
  Country: US (occurrence: US)
  Receive Date: 20200214
  Receipt Date: 20200214
  Transmission Date: 20200409
  Serious: Yes (Hospitalization, Other)
  Sender: FDA-Public Use
  Company Number: US-PFIZER INC-2020052819

PATIENT
  Age: 58 Year
  Sex: Female

DRUGS (1)
  1. VERAPAMIL HCL [Suspect]
     Active Substance: VERAPAMIL HYDROCHLORIDE
     Indication: CEREBRAL VASOCONSTRICTION
     Dosage: 40 MG, UNK (IN THE FLUSHING BAG, MULTIPLE DOSES, INJECTION TO A TOTAL DOSE OF APPROXIMATELY 150 MG)
     Route: 013

REACTIONS (7)
  - Non-cardiogenic pulmonary oedema [Unknown]
  - Hypoxia [Unknown]
  - Hypotension [Unknown]
  - Product use in unapproved indication [Unknown]
  - Off label use [Unknown]
  - Acute respiratory distress syndrome [Unknown]
  - Product use issue [Unknown]
